FAERS Safety Report 11519152 (Version 2)
Quarter: 2015Q4

REPORT INFORMATION
  Report Type: Spontaneous
  Country: US (occurrence: US)
  Receive Date: 20150917
  Receipt Date: 20151028
  Transmission Date: 20160304
  Serious: Yes (Other)
  Sender: FDA-Public Use
  Company Number: US-ALLERGAN-1518631US

PATIENT
  Age: 84 Year
  Sex: Female
  Weight: 57.6 kg

DRUGS (2)
  1. REFRESH OPTIVE ADVANCED [Suspect]
     Active Substance: CARBOXYMETHYLCELLULOSE SODIUM\GLYCERIN\POLYSORBATE 80
     Indication: DRY EYE
     Dosage: UNK UNK, PRN
     Route: 047
     Dates: start: 201505, end: 201509
  2. CLEAR EYES                         /00419602/ [Concomitant]

REACTIONS (5)
  - Eyelid ptosis [Recovered/Resolved]
  - Road traffic accident [Recovered/Resolved]
  - Hip fracture [Recovered/Resolved]
  - Erythema [Recovered/Resolved]
  - Rotator cuff syndrome [Recovered/Resolved]

NARRATIVE: CASE EVENT DATE: 20150505
